FAERS Safety Report 10745975 (Version 1)
Quarter: 2015Q1

REPORT INFORMATION
  Report Type: Report from Study
  Country: JP (occurrence: JP)
  Receive Date: 20150128
  Receipt Date: 20150128
  Transmission Date: 20150721
  Serious: Yes (Hospitalization, Other)
  Sender: FDA-Public Use
  Company Number: JP-EISAI MEDICAL RESEARCH-E2020-11465-CLI-JP

PATIENT
  Age: 69 Year
  Sex: Male
  Weight: 54 kg

DRUGS (20)
  1. SENNOSIDE [Suspect]
     Active Substance: SENNOSIDES
     Indication: CONSTIPATION
     Route: 048
  2. REQUIP [Concomitant]
     Active Substance: ROPINIROLE HYDROCHLORIDE
     Indication: PARKINSON^S DISEASE
     Route: 048
     Dates: start: 20120302
  3. DONEPEZIL [Suspect]
     Active Substance: DONEPEZIL
     Indication: PARKINSON^S DISEASE
     Route: 048
     Dates: start: 20110805, end: 20120818
  4. TIZANIN [Suspect]
     Active Substance: TIZANIDINE
     Indication: TENSION HEADACHE
     Route: 048
     Dates: start: 20111111
  5. JZOLOFT [Suspect]
     Active Substance: SERTRALINE HYDROCHLORIDE
     Indication: ANXIETY
     Route: 048
  6. MOHRUS TAPE [Suspect]
     Active Substance: KETOPROFEN
     Indication: BACK PAIN
     Dosage: UNKNOWN
     Dates: start: 20110818
  7. MELOXICAM. [Concomitant]
     Active Substance: MELOXICAM
     Indication: BACK PAIN
     Route: 048
     Dates: start: 20120315
  8. BESOFTEN [Suspect]
     Active Substance: SODIUM ALGINATE
     Indication: DERMATITIS ATOPIC
     Route: 048
  9. COMTAN [Suspect]
     Active Substance: ENTACAPONE
     Indication: PARKINSON^S DISEASE
     Route: 048
     Dates: start: 20110826
  10. MAGMITT [Suspect]
     Active Substance: MAGNESIUM OXIDE
     Indication: CONSTIPATION
     Route: 048
  11. GASMOTIN [Suspect]
     Active Substance: MOSAPRIDE CITRATE
     Indication: IMPAIRED GASTRIC EMPTYING
     Route: 048
  12. EURODIN [Concomitant]
     Active Substance: ESTAZOLAM
     Indication: INSOMNIA
     Route: 048
     Dates: start: 20120301
  13. PARIET [Concomitant]
     Active Substance: RABEPRAZOLE SODIUM
     Indication: PROPHYLAXIS AGAINST GASTROINTESTINAL ULCER
     Route: 048
     Dates: start: 20120913
  14. RIVOTRIL [Suspect]
     Active Substance: CLONAZEPAM
     Indication: RAPID EYE MOVEMENTS SLEEP ABNORMAL
     Route: 048
  15. PROPADERM [Suspect]
     Active Substance: BECLOMETHASONE DIPROPIONATE
     Indication: DERMATITIS ATOPIC
     Route: 048
  16. RITALIN [Concomitant]
     Active Substance: METHYLPHENIDATE HYDROCHLORIDE
     Indication: SOMNOLENCE
     Route: 048
     Dates: start: 20120329
  17. DONEPEZIL [Suspect]
     Active Substance: DONEPEZIL
     Route: 048
     Dates: start: 20120819, end: 20121011
  18. LIPITOR [Suspect]
     Active Substance: ATORVASTATIN CALCIUM
     Indication: HYPERLIPIDAEMIA
     Route: 048
  19. MENESIT [Suspect]
     Active Substance: CARBIDOPA\LEVODOPA
     Indication: PARKINSON^S DISEASE
     Route: 048
     Dates: start: 20111209
  20. LAXOBERON [Concomitant]
     Active Substance: SODIUM PICOSULFATE
     Indication: CONSTIPATION
     Dosage: UNKNOWN
     Route: 048
     Dates: start: 20120405

REACTIONS (4)
  - Gastric cancer [Recovered/Resolved]
  - Empyema [None]
  - Peritoneal abscess [None]
  - Pancreatic fistula [None]

NARRATIVE: CASE EVENT DATE: 20120927
